FAERS Safety Report 16365562 (Version 1)
Quarter: 2019Q2

REPORT INFORMATION
  Report Type: Spontaneous
  Country: US (occurrence: US)
  Receive Date: 20190422
  Receipt Date: 20190422
  Transmission Date: 20190711
  Serious: No
  Sender: FDA-Public Use
  Company Number: None

PATIENT
  Age: 68 Year
  Sex: Female

DRUGS (1)
  1. PROLIA [Suspect]
     Active Substance: DENOSUMAB
     Indication: SENILE OSTEOPOROSIS
     Dosage: ?          OTHER FREQUENCY:ONCE EVERY SIX MON;?
     Route: 058
     Dates: start: 201805, end: 20190419

REACTIONS (2)
  - Contusion [None]
  - Rash [None]

NARRATIVE: CASE EVENT DATE: 201904
